FAERS Safety Report 7804185-6 (Version None)
Quarter: 2011Q4

REPORT INFORMATION
  Report Type: 
  Country: None (occurrence: None)
  Receive Date: 20111010
  Receipt Date: 20111004
  Transmission Date: 20120403
  Serious: Yes (Other)
  Sender: FDA-Public Use
  Company Number: US-PFIZER INC-2011236464

PATIENT
  Age: 12 Year
  Sex: Female

DRUGS (1)
  1. ZOLOFT [Suspect]
     Dosage: UNK
     Dates: start: 20090901

REACTIONS (7)
  - ANXIETY [None]
  - DEPRESSED MOOD [None]
  - SOMNOLENCE [None]
  - ANGER [None]
  - FEELING ABNORMAL [None]
  - DEPRESSION [None]
  - DRUG INEFFECTIVE [None]
